FAERS Safety Report 20373938 (Version 2)
Quarter: 2022Q4

REPORT INFORMATION
  Report Type: Report from Study
  Country: US (occurrence: None)
  Receive Date: 20220125
  Receipt Date: 20221212
  Transmission Date: 20230113
  Serious: Yes (Death, Hospitalization)
  Sender: FDA-Public Use
  Company Number: US-ROCHE-2581963

PATIENT
  Sex: Female
  Weight: 73.8 kg

DRUGS (11)
  1. ATEZOLIZUMAB [Suspect]
     Active Substance: ATEZOLIZUMAB
     Indication: Colorectal cancer metastatic
     Dosage: 60 MINUTES ON DAY 1 (MAX = 48 CYCLES) LAST ADMINISTERED DATE:11-FEB-2020
     Route: 042
     Dates: start: 20191022
  2. BEVACIZUMAB [Suspect]
     Active Substance: BEVACIZUMAB
     Indication: Colorectal cancer metastatic
     Dosage: 369MG OVER 90 MINUTES ON DAY 1?LAST ADMINISTERED DATE:11-FEB-2020  369 MG
     Route: 042
     Dates: start: 20191022
  3. FLUOROURACIL [Suspect]
     Active Substance: FLUOROURACIL
     Indication: Colorectal cancer metastatic
     Dosage: 510 MG?2400 MG/M2  CONTINUOUS INFUSION OVER 46-48 HOURS STARTING DAY 1?LAST ADMINISTERED DATE:11-FEB
     Route: 042
     Dates: start: 20191022
  4. LEUCOVORIN CALCIUM [Suspect]
     Active Substance: LEUCOVORIN CALCIUM
     Indication: Colorectal cancer metastatic
     Dosage: OVER 2 HOURS ON DAY 1 700 MG?LAST ADMINISTERED DATE:11-FEB-2020
     Route: 042
     Dates: start: 20191022
  5. OXALIPLATIN [Suspect]
     Active Substance: OXALIPLATIN
     Indication: Colorectal cancer metastatic
     Dosage: 150 MG OVER 2 HOURS ON DAY 1?LAST ADMINISTERED DATE:11-FEB-2020
     Route: 042
     Dates: start: 20191022, end: 20200211
  6. AMLODIPINE [Concomitant]
     Active Substance: AMLODIPINE BESYLATE
  7. GABAPENTIN [Concomitant]
     Active Substance: GABAPENTIN
  8. LEVOTHYROXINE [Concomitant]
     Active Substance: LEVOTHYROXINE
  9. LOSARTAN [Concomitant]
     Active Substance: LOSARTAN
  10. SIMVASTATIN [Concomitant]
     Active Substance: SIMVASTATIN
  11. WARFARIN [Concomitant]
     Active Substance: WARFARIN

REACTIONS (7)
  - Hyponatraemia [Recovered/Resolved]
  - Adrenal insufficiency [Recovered/Resolved]
  - Pneumonia [Fatal]
  - Disease progression [Fatal]
  - Urinary tract infection [Recovered/Resolved]
  - Pneumonia [Recovered/Resolved]
  - Lethargy [Recovered/Resolved]

NARRATIVE: CASE EVENT DATE: 20200228
